FAERS Safety Report 7473282-X (Version None)
Quarter: 2011Q2

REPORT INFORMATION
  Report Type: 
  Country: None (occurrence: None)
  Receive Date: 20110511
  Receipt Date: 20110502
  Transmission Date: 20111010
  Serious: Yes (Other)
  Sender: FDA-Public Use
  Company Number: CA-ASTRAZENECA-2011SE17696

PATIENT
  Age: 71 Year
  Sex: Male
  Weight: 89.3 kg

DRUGS (5)
  1. ATACAND [Suspect]
     Indication: HYPERTENSION
     Route: 048
     Dates: start: 20110101, end: 20110124
  2. ASPIRIN [Concomitant]
     Route: 048
  3. ATACAND [Suspect]
     Route: 048
     Dates: start: 20110124, end: 20110330
  4. VITAMIN D [Concomitant]
     Dosage: ONCE A WEEK
     Route: 048
  5. RANITIDINE [Concomitant]
     Route: 048

REACTIONS (7)
  - ABASIA [None]
  - DIZZINESS [None]
  - MYALGIA [None]
  - FEELING ABNORMAL [None]
  - ASTHENIA [None]
  - HEADACHE [None]
  - BACK PAIN [None]
